FAERS Safety Report 12917574 (Version 1)
Quarter: 2016Q4

REPORT INFORMATION
  Report Type: Report from Study
  Country: JP (occurrence: JP)
  Receive Date: 20161107
  Receipt Date: 20161107
  Transmission Date: 20170207
  Serious: Yes (Other)
  Sender: FDA-Public Use
  Company Number: PHJP2016JP031778

PATIENT
  Age: 79 Year
  Sex: Female

DRUGS (35)
  1. OFATUMUMAB [Suspect]
     Active Substance: OFATUMUMAB
     Indication: CHRONIC LYMPHOCYTIC LEUKAEMIA
     Dosage: 300 MG, QD
     Route: 041
     Dates: start: 20150821, end: 20150821
  2. OFATUMUMAB [Suspect]
     Active Substance: OFATUMUMAB
     Dosage: 2000 MG, QD
     Route: 041
     Dates: start: 20151008, end: 20151008
  3. PREDNISOLONE. [Concomitant]
     Active Substance: PREDNISOLONE
     Dosage: 100 MG, QD
     Route: 065
     Dates: start: 20150917, end: 20150917
  4. POLARAMINE [Concomitant]
     Active Substance: DEXCHLORPHENIRAMINE MALEATE
     Dosage: 2 MG, QD
     Route: 065
     Dates: start: 20151008, end: 20151008
  5. ZOVIRAX [Concomitant]
     Active Substance: ACYCLOVIR
     Indication: PRODUCT USED FOR UNKNOWN INDICATION
     Dosage: 200 MG, QD
     Route: 065
  6. BRUFEN [Concomitant]
     Active Substance: IBUPROFEN
     Dosage: 200 MG, QD
     Route: 065
     Dates: start: 20151001, end: 20151001
  7. BRUFEN [Concomitant]
     Active Substance: IBUPROFEN
     Dosage: 200 MG, QD
     Route: 065
     Dates: start: 20151008, end: 20151008
  8. POLARAMINE [Concomitant]
     Active Substance: DEXCHLORPHENIRAMINE MALEATE
     Indication: PRODUCT USED FOR UNKNOWN INDICATION
     Dosage: 2 MG, QD
     Route: 065
     Dates: start: 20150821, end: 20150821
  9. POLARAMINE [Concomitant]
     Active Substance: DEXCHLORPHENIRAMINE MALEATE
     Dosage: 2 MG, QD
     Route: 065
     Dates: start: 20150924, end: 20150924
  10. POLARAMINE [Concomitant]
     Active Substance: DEXCHLORPHENIRAMINE MALEATE
     Dosage: 2 MG, QD
     Route: 065
     Dates: start: 20151001, end: 20151001
  11. PREDNISOLONE. [Concomitant]
     Active Substance: PREDNISOLONE
     Indication: PRODUCT USED FOR UNKNOWN INDICATION
     Dosage: 100 MG, QD
     Route: 065
     Dates: start: 20150821, end: 20150821
  12. PREDNISOLONE. [Concomitant]
     Active Substance: PREDNISOLONE
     Dosage: 100 MG, QD
     Route: 065
     Dates: start: 20151001, end: 20151001
  13. OFATUMUMAB [Suspect]
     Active Substance: OFATUMUMAB
     Dosage: 2000 MG, QD
     Route: 041
     Dates: start: 20150828, end: 20150828
  14. OFATUMUMAB [Suspect]
     Active Substance: OFATUMUMAB
     Dosage: 2000 MG, QD
     Route: 041
     Dates: start: 20150917, end: 20150917
  15. OFATUMUMAB [Suspect]
     Active Substance: OFATUMUMAB
     Dosage: 2000 MG, QD
     Route: 041
     Dates: start: 20150924, end: 20150924
  16. OFATUMUMAB [Suspect]
     Active Substance: OFATUMUMAB
     Dosage: 2000 MG, QD
     Route: 041
     Dates: start: 20151015, end: 20151015
  17. PREDNISOLONE. [Concomitant]
     Active Substance: PREDNISOLONE
     Dosage: 100 MG, QD
     Route: 065
     Dates: start: 20150904, end: 20150904
  18. BRUFEN [Concomitant]
     Active Substance: IBUPROFEN
     Dosage: 200 MG, QD
     Route: 065
     Dates: start: 20150904, end: 20150904
  19. PREDNISOLONE. [Concomitant]
     Active Substance: PREDNISOLONE
     Dosage: 100 MG, QD
     Route: 065
     Dates: start: 20150924, end: 20150924
  20. POLARAMINE [Concomitant]
     Active Substance: DEXCHLORPHENIRAMINE MALEATE
     Dosage: 2 MG, QD
     Route: 065
     Dates: start: 20150904, end: 20150904
  21. PREDNISOLONE. [Concomitant]
     Active Substance: PREDNISOLONE
     Dosage: 100 MG, QD
     Route: 065
     Dates: start: 20150828, end: 20150828
  22. BRUFEN [Concomitant]
     Active Substance: IBUPROFEN
     Dosage: 200 MG, QD
     Route: 065
     Dates: start: 20150828, end: 20150828
  23. BRUFEN [Concomitant]
     Active Substance: IBUPROFEN
     Dosage: 200 MG, QD
     Route: 065
     Dates: start: 20150924, end: 20150924
  24. POLARAMINE [Concomitant]
     Active Substance: DEXCHLORPHENIRAMINE MALEATE
     Dosage: 2 MG, QD
     Route: 065
     Dates: start: 20150828, end: 20150828
  25. POLARAMINE [Concomitant]
     Active Substance: DEXCHLORPHENIRAMINE MALEATE
     Dosage: 2 MG, QD
     Route: 065
     Dates: start: 20151015, end: 20151015
  26. BAKTAR [Concomitant]
     Active Substance: SULFAMETHOXAZOLE\TRIMETHOPRIM
     Indication: PRODUCT USED FOR UNKNOWN INDICATION
     Dosage: 1 DF, QD
     Route: 048
  27. PREDNISOLONE. [Concomitant]
     Active Substance: PREDNISOLONE
     Dosage: 100 MG, QD
     Route: 065
     Dates: start: 20151008, end: 20151008
  28. PREDNISOLONE. [Concomitant]
     Active Substance: PREDNISOLONE
     Dosage: 100 MG, QD
     Route: 065
     Dates: start: 20151015, end: 20151015
  29. BRUFEN [Concomitant]
     Active Substance: IBUPROFEN
     Indication: PRODUCT USED FOR UNKNOWN INDICATION
     Dosage: 2000 MG, QD
     Route: 065
     Dates: start: 20150821, end: 20150821
  30. BRUFEN [Concomitant]
     Active Substance: IBUPROFEN
     Dosage: 200 MG, QD
     Route: 065
     Dates: start: 20151015, end: 20151015
  31. OFATUMUMAB [Suspect]
     Active Substance: OFATUMUMAB
     Dosage: 2000 MG, QD
     Route: 041
     Dates: start: 20150904, end: 20150904
  32. OFATUMUMAB [Suspect]
     Active Substance: OFATUMUMAB
     Dosage: 2000 MG, QD
     Route: 041
     Dates: start: 20151001, end: 20151001
  33. BRUFEN [Concomitant]
     Active Substance: IBUPROFEN
     Dosage: 200 MG, QD
     Route: 065
     Dates: start: 20150917, end: 20150917
  34. POLARAMINE [Concomitant]
     Active Substance: DEXCHLORPHENIRAMINE MALEATE
     Dosage: 2 MG, QD
     Route: 065
     Dates: start: 20150917, end: 20150917
  35. FLUDARA [Concomitant]
     Active Substance: FLUDARABINE PHOSPHATE
     Indication: CHRONIC LYMPHOCYTIC LEUKAEMIA
     Dosage: 60 MG, QD
     Route: 065

REACTIONS (3)
  - Colon cancer [Unknown]
  - Rash [Recovered/Resolved]
  - Second primary malignancy [Unknown]

NARRATIVE: CASE EVENT DATE: 20150821
